FAERS Safety Report 4579752-6 (Version None)
Quarter: 2005Q1

REPORT INFORMATION
  Report Type: 
  Country: None (occurrence: None)
  Receive Date: 20050210
  Receipt Date: 20041202
  Transmission Date: 20050727
  Serious: Yes (Death)
  Sender: FDA-Public Use
  Company Number: 2004AP06112

PATIENT
  Age: 78 Year
  Sex: Male
  Weight: 50 kg

DRUGS (17)
  1. SEROQUEL [Suspect]
     Indication: SCHIZOPHRENIA
     Dosage: 25 MG TID PO
     Route: 048
     Dates: start: 20041021, end: 20041027
  2. SEROQUEL [Suspect]
     Indication: SCHIZOPHRENIA
     Dosage: 50 MG TID PO
     Route: 048
     Dates: start: 20041028
  3. VOLTAREN [Suspect]
     Dosage: 25 MG DAILY RC
     Dates: start: 20041123
  4. SERENACE [Concomitant]
  5. LEVOTOMIN [Concomitant]
  6. EURODIN [Concomitant]
  7. BLADDERON [Concomitant]
  8. SLO-BID [Concomitant]
  9. ONON [Concomitant]
  10. MEXITIL [Concomitant]
  11. BISOLVON [Concomitant]
  12. MUCOSOLVAN [Concomitant]
  13. FERROMIA [Concomitant]
  14. AKINETON [Concomitant]
  15. GASTER [Concomitant]
  16. EFFORTIL [Concomitant]
  17. DOPAMINE HCL [Concomitant]

REACTIONS (15)
  - BACTERIA SPUTUM IDENTIFIED [None]
  - C-REACTIVE PROTEIN INCREASED [None]
  - CARDIO-RESPIRATORY ARREST [None]
  - DEPRESSED LEVEL OF CONSCIOUSNESS [None]
  - GRANULOCYTOPENIA [None]
  - HAEMORRHAGIC DIATHESIS [None]
  - INFECTION IN AN IMMUNOCOMPROMISED HOST [None]
  - KLEBSIELLA INFECTION [None]
  - LEUKOPENIA [None]
  - MULTI-ORGAN FAILURE [None]
  - PNEUMONIA [None]
  - RENAL FAILURE ACUTE [None]
  - RESPIRATORY FAILURE [None]
  - SEPTIC SHOCK [None]
  - THERAPEUTIC PRODUCT INEFFECTIVE [None]
